FAERS Safety Report 16305848 (Version 1)
Quarter: 2019Q2

REPORT INFORMATION
  Report Type: Spontaneous
  Country: FR (occurrence: FR)
  Receive Date: 20190513
  Receipt Date: 20190513
  Transmission Date: 20190711
  Serious: Yes (Life-Threatening)
  Sender: FDA-Public Use
  Company Number: FR-BAXTER-2019BAX009363

PATIENT
  Age: 44 Year
  Sex: Female
  Weight: 61 kg

DRUGS (4)
  1. CELLCEPT [Suspect]
     Active Substance: MYCOPHENOLATE MOFETIL\MYCOPHENOLATE MOFETIL HYDROCHLORIDE
     Indication: LUPUS-LIKE SYNDROME
     Dosage: DOSAGE FORM: TABLET
     Route: 048
     Dates: start: 201312, end: 20190104
  2. BENLYSTA [Suspect]
     Active Substance: BELIMUMAB
     Indication: LUPUS-LIKE SYNDROME
     Route: 042
     Dates: start: 201807, end: 20190104
  3. ENDOXAN 1000 MG, POUDRE POUR SOLUTIONINJECTABLE [Suspect]
     Active Substance: CYCLOPHOSPHAMIDE
     Indication: LUPUS-LIKE SYNDROME
     Route: 042
     Dates: start: 201307, end: 201312
  4. METHOTREXATE. [Suspect]
     Active Substance: METHOTREXATE
     Indication: LUPUS-LIKE SYNDROME
     Route: 048
     Dates: start: 2006, end: 201307

REACTIONS (1)
  - Triple negative breast cancer [Not Recovered/Not Resolved]

NARRATIVE: CASE EVENT DATE: 201812
